FAERS Safety Report 23096599 (Version 1)
Quarter: 2023Q4

REPORT INFORMATION
  Report Type: Spontaneous
  Country: CN (occurrence: CN)
  Receive Date: 20231023
  Receipt Date: 20231023
  Transmission Date: 20240110
  Serious: Yes (Other)
  Sender: FDA-Public Use
  Company Number: CN-009507513-2310CHN009647

PATIENT
  Age: 83 Year
  Sex: Female
  Weight: 65 kg

DRUGS (4)
  1. JANUMET [Suspect]
     Active Substance: METFORMIN HYDROCHLORIDE\SITAGLIPTIN PHOSPHATE
     Indication: Diabetes mellitus
     Dosage: 1 TABLET, BID
     Route: 048
     Dates: start: 20231006, end: 20231010
  2. SITAGLIPTIN PHOSPHATE [Suspect]
     Active Substance: SITAGLIPTIN PHOSPHATE
     Dosage: 0.1 GRAM, QM
     Route: 048
     Dates: start: 20231011
  3. SITAGLIPTIN PHOSPHATE [Suspect]
     Active Substance: SITAGLIPTIN PHOSPHATE
     Dosage: 0.1 GRAM, QM
     Route: 048
     Dates: start: 202310
  4. GLICLAZIDE [Concomitant]
     Active Substance: GLICLAZIDE
     Indication: Diabetes mellitus
     Dosage: 30 MG, QM
     Route: 048
     Dates: start: 20231006, end: 20231012

REACTIONS (4)
  - Diabetes mellitus inadequate control [Unknown]
  - Flatulence [Recovered/Resolved]
  - Gastrointestinal disorder [Recovered/Resolved]
  - Inappropriate schedule of product administration [Unknown]

NARRATIVE: CASE EVENT DATE: 20231001
